FAERS Safety Report 8612189-9 (Version None)
Quarter: 2012Q3

REPORT INFORMATION
  Report Type: 
  Country: None (occurrence: None)
  Receive Date: 20120822
  Receipt Date: 20120810
  Transmission Date: 20120928
  Serious: Yes (Other)
  Sender: FDA-Public Use
  Company Number: JP-JNJFOC-20120413885

PATIENT
  Sex: Male
  Weight: 55 kg

DRUGS (35)
  1. FENTANYL-100 [Suspect]
     Route: 062
     Dates: start: 20120216, end: 20120225
  2. CODEINE PHOSPHATE [Suspect]
     Route: 048
     Dates: start: 20120105, end: 20120105
  3. CODEINE PHOSPHATE [Suspect]
     Route: 048
     Dates: end: 20120104
  4. LYRICA [Suspect]
     Indication: PAIN
     Route: 048
     Dates: start: 20111215, end: 20120101
  5. LENDORMIN D [Concomitant]
     Route: 048
     Dates: start: 20120106
  6. MORPHINE HCL ELIXIR [Suspect]
     Route: 048
     Dates: start: 20120217
  7. LAXOBERON [Concomitant]
     Indication: CONSTIPATION
     Dosage: 5 TO 10 MG PER DAY, AS NEEDED
     Route: 048
     Dates: start: 20111229, end: 20111229
  8. OLMESARTAN MEDOXOMIL [Concomitant]
     Indication: HYPERTENSION
     Route: 048
     Dates: start: 20070110
  9. LIPITOR [Concomitant]
     Indication: HYPERLIPIDAEMIA
     Route: 048
     Dates: start: 20080227
  10. AN UNKNOWN MEDICATION [Concomitant]
     Indication: PRODUCT USED FOR UNKNOWN INDICATION
     Dosage: AS REQUIRED
     Route: 048
  11. FENTANYL-100 [Suspect]
     Route: 062
     Dates: start: 20120206, end: 20120216
  12. MORPHINE HCL ELIXIR [Suspect]
     Indication: WITHDRAWAL SYNDROME
     Route: 048
     Dates: start: 20111229, end: 20120104
  13. MORPHINE HCL ELIXIR [Suspect]
     Route: 048
     Dates: start: 20120112, end: 20120118
  14. PRIMPERAN TAB [Concomitant]
     Route: 048
     Dates: start: 20111222, end: 20111222
  15. CEFAZOLIN SODIUM [Concomitant]
     Indication: PRODUCT USED FOR UNKNOWN INDICATION
     Route: 048
     Dates: start: 20120112
  16. LENDORMIN D [Concomitant]
     Route: 048
     Dates: start: 20091111, end: 20100729
  17. FENTANYL-100 [Suspect]
     Route: 062
     Dates: start: 20120119, end: 20120206
  18. FENTANYL-100 [Suspect]
     Route: 062
     Dates: start: 20111229, end: 20120117
  19. CODEINE PHOSPHATE [Suspect]
     Route: 048
  20. PRIMPERAN TAB [Concomitant]
     Indication: PROPHYLAXIS
     Dosage: 1 P.R.N
     Route: 048
     Dates: start: 20120202, end: 20120216
  21. PURSENNID [Concomitant]
     Route: 048
     Dates: start: 20110126, end: 20110126
  22. AN UNKNOWN MEDICATION [Concomitant]
     Route: 042
     Dates: start: 20120216, end: 20120216
  23. DEPAS [Concomitant]
     Indication: WITHDRAWAL SYNDROME
     Route: 048
     Dates: start: 20120308, end: 20120406
  24. FENTANYL-100 [Suspect]
     Indication: PAIN
     Route: 062
     Dates: start: 20120225, end: 20120305
  25. ZANTAC [Concomitant]
     Route: 048
     Dates: start: 20111212
  26. MORPHINE HCL ELIXIR [Suspect]
     Route: 048
     Dates: start: 20120119, end: 20120126
  27. NAUZELIN OD [Concomitant]
     Indication: PRODUCT USED FOR UNKNOWN INDICATION
     Route: 048
     Dates: start: 20120216, end: 20120223
  28. MORPHINE HCL ELIXIR [Suspect]
     Route: 048
     Dates: start: 20120105, end: 20120111
  29. LYRICA [Suspect]
     Route: 048
     Dates: start: 20120102, end: 20120216
  30. MAGLAX [Concomitant]
     Indication: CONSTIPATION
     Route: 048
     Dates: start: 20111222, end: 20120111
  31. FENTANYL-100 [Suspect]
     Route: 062
     Dates: start: 20120107, end: 20120119
  32. CODEINE PHOSPHATE [Suspect]
     Indication: PRODUCT USED FOR UNKNOWN INDICATION
     Route: 048
     Dates: start: 20111229
  33. LECICARBON [Suspect]
     Indication: CONSTIPATION
     Route: 054
     Dates: start: 20120105
  34. LENDORMIN D [Concomitant]
     Route: 048
     Dates: start: 20100730, end: 20111214
  35. PRIMPERAN TAB [Concomitant]
     Route: 042
     Dates: start: 20120216, end: 20120216

REACTIONS (10)
  - CONSTIPATION [None]
  - NAUSEA [None]
  - WEIGHT DECREASED [None]
  - WITHDRAWAL SYNDROME [None]
  - VOMITING [None]
  - EATING DISORDER [None]
  - PALPITATIONS [None]
  - TONGUE DRY [None]
  - SOMNOLENCE [None]
  - DIZZINESS [None]
